FAERS Safety Report 16283409 (Version 2)
Quarter: 2019Q2

REPORT INFORMATION
  Report Type: Spontaneous
  Country: US (occurrence: US)
  Receive Date: 20190507
  Receipt Date: 20190619
  Transmission Date: 20190711
  Serious: No
  Sender: FDA-Public Use
  Company Number: US-BAUSCH-BL-2019-011942

PATIENT
  Age: 48 Year
  Sex: Female
  Weight: 62.65 kg

DRUGS (4)
  1. FLONASE [Concomitant]
     Active Substance: FLUTICASONE PROPIONATE
     Indication: PRODUCT USED FOR UNKNOWN INDICATION
  2. ALREX [Suspect]
     Active Substance: LOTEPREDNOL ETABONATE
     Dosage: ONE DROP IN BOTH EYES AS NEEDED
     Route: 047
     Dates: start: 20190412
  3. CLARITIN [Concomitant]
     Active Substance: LORATADINE
     Indication: PRODUCT USED FOR UNKNOWN INDICATION
  4. ALREX [Suspect]
     Active Substance: LOTEPREDNOL ETABONATE
     Indication: SEASONAL ALLERGY
     Dosage: ONE DROP IN BOTH EYES AS NEEDED, USING FOR MANY YEARS
     Route: 047

REACTIONS (7)
  - Photophobia [Recovered/Resolved]
  - Product quality issue [Unknown]
  - Eye disorder [Recovered/Resolved]
  - Discomfort [Unknown]
  - Eye pain [Recovered/Resolved]
  - Loss of personal independence in daily activities [Recovered/Resolved]
  - Lacrimation increased [Recovered/Resolved]

NARRATIVE: CASE EVENT DATE: 20190415
